FAERS Safety Report 4662064-X (Version None)
Quarter: 2005Q2

REPORT INFORMATION
  Report Type: 
  Country: None (occurrence: None)
  Receive Date: 20050516
  Receipt Date: 20050106
  Transmission Date: 20051028
  Serious: Yes (Other)
  Sender: FDA-Public Use
  Company Number: 200510747GDDC

PATIENT
  Age: 35 Year
  Sex: Female

DRUGS (9)
  1. ARAVA [Suspect]
     Indication: POLYARTHRITIS
     Route: 048
     Dates: start: 20030110, end: 20040929
  2. ARAVA [Suspect]
     Indication: RHEUMATOID FACTOR POSITIVE
     Route: 048
     Dates: start: 20030110, end: 20040929
  3. DOTHIEPIN HYDROCHLORIDE [Concomitant]
     Dosage: DOSE: UNKNOWN DOSAGE
  4. NEXIUM [Concomitant]
     Indication: GASTROOESOPHAGEAL REFLUX DISEASE
     Dosage: DOSE: UNKNOWN DOSAGE
  5. RANITIDINE [Concomitant]
     Indication: GASTROOESOPHAGEAL REFLUX DISEASE
     Dosage: DOSE: UNKNOWN DOSAGE
  6. TRAMAL - SLOW RELEASE [Concomitant]
     Indication: ARTHRALGIA
     Route: 048
     Dates: start: 20031201, end: 20041101
  7. SEROQUEL [Concomitant]
     Dosage: DOSE: UNKNOWN DOSAGE
  8. REMICADE [Concomitant]
     Dosage: DOSE: UNKNOWN DOSAGE
     Dates: start: 20040901
  9. THYROXINE [Concomitant]
     Indication: HYPOTHYROIDISM
     Route: 048
     Dates: start: 20000101

REACTIONS (5)
  - DYSGEUSIA [None]
  - GASTROOESOPHAGEAL REFLUX DISEASE [None]
  - HELICOBACTER INFECTION [None]
  - SENSITIVITY OF TEETH [None]
  - TONGUE DISCOLOURATION [None]
